FAERS Safety Report 5051899-X (Version None)
Quarter: 2006Q3

REPORT INFORMATION
  Report Type: 
  Country: None (occurrence: None)
  Receive Date: 20060711
  Receipt Date: 20060616
  Transmission Date: 20061208
  Serious: No
  Sender: FDA-Public Use
  Company Number: US200606004092

PATIENT
  Age: 50 Year
  Sex: Female

DRUGS (4)
  1. ZYPREXA [Suspect]
     Dosage: 10 MG
  2. CLOZAPINE [Concomitant]
  3. DEPAKOTE [Concomitant]
  4. LITHOBID [Concomitant]

REACTIONS (1)
  - GRANULOCYTOPENIA [None]
